FAERS Safety Report 16210755 (Version 3)
Quarter: 2019Q4

REPORT INFORMATION
  Report Type: Report from Study
  Country: FR (occurrence: FR)
  Receive Date: 20190418
  Receipt Date: 20191230
  Transmission Date: 20200122
  Serious: Yes (Death, Hospitalization)
  Sender: FDA-Public Use
  Company Number: FR-ROCHE-2304423

PATIENT
  Age: 64 Year
  Sex: Male

DRUGS (4)
  1. VINORELBINE [Suspect]
     Active Substance: VINORELBINE TARTRATE
     Indication: NON-SMALL CELL LUNG CANCER
     Route: 065
     Dates: start: 20190225
  2. ATEZOLIZUMAB. [Suspect]
     Active Substance: ATEZOLIZUMAB
     Indication: NON-SMALL CELL LUNG CANCER
     Route: 065
     Dates: start: 20190225
  3. ATEZOLIZUMAB. [Suspect]
     Active Substance: ATEZOLIZUMAB
     Route: 065
     Dates: start: 20190408
  4. VINORELBINE [Suspect]
     Active Substance: VINORELBINE TARTRATE
     Route: 065
     Dates: start: 20190308

REACTIONS (3)
  - Sensory loss [Unknown]
  - General physical health deterioration [Fatal]
  - Paraesthesia [Unknown]

NARRATIVE: CASE EVENT DATE: 20190328
